FAERS Safety Report 9393357 (Version 1)
Quarter: 2013Q3

REPORT INFORMATION
  Report Type: Spontaneous
  Country: US (occurrence: None)
  Receive Date: 20130709
  Receipt Date: 20130709
  Transmission Date: 20140515
  Serious: Yes (Death, Life-Threatening, Hospitalization)
  Sender: FDA-Public Use
  Company Number: None

PATIENT
  Age: 87 Year
  Sex: Female

DRUGS (4)
  1. SALINE [Suspect]
  2. FRESENIUS [Concomitant]
  3. GRANUFLO [Concomitant]
  4. BICARBONATE [Concomitant]

REACTIONS (3)
  - Dyspnoea [None]
  - Cardio-respiratory arrest [None]
  - Medical device complication [None]
